FAERS Safety Report 14014433 (Version 2)
Quarter: 2017Q4

REPORT INFORMATION
  Report Type: Report from Study
  Country: US (occurrence: US)
  Receive Date: 20170927
  Receipt Date: 20171004
  Transmission Date: 20180321
  Serious: No
  Sender: FDA-Public Use
  Company Number: US-AMGEN-USASL2017145088

PATIENT
  Sex: Female

DRUGS (1)
  1. ENBREL [Suspect]
     Active Substance: ETANERCEPT
     Indication: PSORIASIS
     Dosage: 50 MG, QWK
     Route: 058

REACTIONS (4)
  - Sinus congestion [Unknown]
  - Respiratory tract congestion [Unknown]
  - Pyrexia [Unknown]
  - Sinus disorder [Unknown]

NARRATIVE: CASE EVENT DATE: 201709
